FAERS Safety Report 9482516 (Version 1)
Quarter: 2013Q3

REPORT INFORMATION
  Report Type: Spontaneous
  Country: US (occurrence: US)
  Receive Date: 20130828
  Receipt Date: 20130828
  Transmission Date: 20140515
  Serious: No
  Sender: FDA-Public Use
  Company Number: US-SANOFI-AVENTIS-2013SA053575

PATIENT
  Age: 62 Year
  Sex: Male

DRUGS (7)
  1. ELIGARD [Suspect]
     Route: 065
     Dates: start: 20121227
  2. ELIGARD [Suspect]
     Route: 065
     Dates: start: 20130129
  3. ELIGARD [Suspect]
     Route: 065
     Dates: start: 20130129
  4. ELIGARD [Suspect]
     Route: 065
     Dates: start: 20130129
  5. ELIGARD [Suspect]
     Route: 065
     Dates: start: 20130429
  6. ELIGARD [Suspect]
     Route: 065
     Dates: start: 20130429
  7. ELIGARD [Suspect]
     Route: 065
     Dates: start: 20130429

REACTIONS (4)
  - Blood testosterone decreased [Unknown]
  - Blood testosterone increased [Unknown]
  - Adverse event [Recovered/Resolved]
  - Hot flush [Recovered/Resolved]
